FAERS Safety Report 6615802-0 (Version None)
Quarter: 2010Q1

REPORT INFORMATION
  Report Type: 
  Country: None (occurrence: None)
  Receive Date: 20100305
  Receipt Date: 20100223
  Transmission Date: 20100710
  Serious: Yes (Other)
  Sender: FDA-Public Use
  Company Number: CA-JNJFOC-20100300680

PATIENT
  Sex: Female

DRUGS (3)
  1. EXTRA STRENGTH TYLENOL [Suspect]
  2. EXTRA STRENGTH TYLENOL [Suspect]
     Indication: MIGRAINE
  3. BLOOD PRESSURE MEDICATION NOS [Concomitant]
     Indication: HYPERTENSION

REACTIONS (2)
  - BLOOD PRESSURE INCREASED [None]
  - LABORATORY TEST ABNORMAL [None]
